FAERS Safety Report 4346171-7 (Version None)
Quarter: 2004Q2

REPORT INFORMATION
  Report Type: 
  Country: None (occurrence: None)
  Receive Date: 20040423
  Receipt Date: 20040423
  Transmission Date: 20050107
  Serious: Yes (Other)
  Sender: FDA-Public Use
  Company Number: None

PATIENT
  Age: 72 Year
  Sex: Male
  Weight: 82.1011 kg

DRUGS (15)
  1. GOEDON (ZIPRASIDONE) 40 MG PO TID PFIZER [Suspect]
     Indication: ABNORMAL BEHAVIOUR
     Dosage: 40 MG PO TID
     Route: 048
     Dates: start: 20040101, end: 20040401
  2. GOEDON (ZIPRASIDONE) 40 MG PO TID PFIZER [Suspect]
     Indication: DEMENTIA
     Dosage: 40 MG PO TID
     Route: 048
     Dates: start: 20040101, end: 20040401
  3. NEMENDA [Concomitant]
  4. DEPAKOTE [Concomitant]
  5. LOPRESSOR [Concomitant]
  6. ARICEPT [Concomitant]
  7. REMERON [Concomitant]
  8. DIGOXIN [Concomitant]
  9. ZESTRIL [Concomitant]
  10. LASIX [Concomitant]
  11. COLACE [Concomitant]
  12. LIPITOR [Concomitant]
  13. WARFARIN SODIUM [Concomitant]
  14. METAMUCIL-2 [Concomitant]
  15. M.V.I. [Concomitant]

REACTIONS (1)
  - ELECTROCARDIOGRAM QT PROLONGED [None]
